FAERS Safety Report 11265493 (Version 2)
Quarter: 2015Q3

REPORT INFORMATION
  Report Type: Spontaneous
  Country: JP (occurrence: JP)
  Receive Date: 20150713
  Receipt Date: 20150721
  Transmission Date: 20151125
  Serious: Yes (Other)
  Sender: FDA-Public Use
  Company Number: JP-PFIZER INC-2015231415

PATIENT
  Age: 8 Decade
  Sex: Male
  Weight: 64 kg

DRUGS (3)
  1. TRAMCET [Suspect]
     Active Substance: ACETAMINOPHEN\TRAMADOL
     Dosage: 1 DF, 1X/DAY
     Route: 048
     Dates: start: 20150622, end: 20150709
  2. TRYPTANOL [Suspect]
     Active Substance: AMITRIPTYLINE
     Dosage: 1 DF, 1X/DAY
     Route: 048
     Dates: start: 20150706, end: 20150708
  3. GABAPEN [Suspect]
     Active Substance: GABAPENTIN
     Dosage: 1 DF, 1X/DAY
     Route: 048
     Dates: start: 20150618

REACTIONS (1)
  - Delirium [Recovered/Resolved]

NARRATIVE: CASE EVENT DATE: 20150706
